FAERS Safety Report 21325307 (Version 3)
Quarter: 2022Q3

REPORT INFORMATION
  Report Type: Spontaneous
  Country: US (occurrence: US)
  Receive Date: 20220912
  Receipt Date: 20220928
  Transmission Date: 20221027
  Serious: No
  Sender: FDA-Public Use
  Company Number: US-SANOFI-01263021

PATIENT
  Age: 60 Year
  Sex: Female

DRUGS (2)
  1. APIDRA [Suspect]
     Active Substance: INSULIN GLULISINE
     Indication: Type 2 diabetes mellitus
     Dosage: 30 IU, TID
  2. APIDRA [Suspect]
     Active Substance: INSULIN GLULISINE
     Dosage: 52 IU TID

REACTIONS (1)
  - Blood glucose increased [Unknown]
